FAERS Safety Report 26069757 (Version 1)
Quarter: 2025Q4

REPORT INFORMATION
  Report Type: Spontaneous
  Country: US (occurrence: US)
  Receive Date: 20251120
  Receipt Date: 20251120
  Transmission Date: 20260117
  Serious: No
  Sender: CATALYST PHARMA
  Company Number: US-CATALYST PHARMACEUTICALS-US-CATA-25-01241

PATIENT
  Sex: Male
  Weight: 32.2 kg

DRUGS (4)
  1. AGAMREE [Suspect]
     Active Substance: VAMOROLONE
     Indication: Duchenne muscular dystrophy
     Dosage: 3.7 ML DAILY
     Route: 048
     Dates: start: 20240828
  2. MULTIVITAMIN GUMMY [Concomitant]
     Indication: Hypovitaminosis
     Dosage: DAILY
     Route: 048
  3. VITAMIN D3 GUMMY [Concomitant]
     Indication: Bone disorder
     Dosage: DAILY
     Route: 048
  4. VITAMIN D3 GUMMY [Concomitant]
     Indication: Prophylaxis

REACTIONS (2)
  - Weight increased [Not Recovered/Not Resolved]
  - Cushingoid [Not Recovered/Not Resolved]

NARRATIVE: CASE EVENT DATE: 20240101
